FAERS Safety Report 5110941-8 (Version None)
Quarter: 2006Q3

REPORT INFORMATION
  Report Type: 
  Country: None (occurrence: None)
  Receive Date: 20060920
  Receipt Date: 20060920
  Transmission Date: 20061208
  Serious: Yes (Other)
  Sender: FDA-Public Use
  Company Number: None

PATIENT
  Age: 40 Year
  Sex: Female
  Weight: 88.4514 kg

DRUGS (1)
  1. LISINOPRIL [Suspect]
     Dosage: 10MG DAILY PO
     Route: 048
     Dates: start: 20030601, end: 20060910

REACTIONS (13)
  - ARTHRALGIA [None]
  - ASTHENIA [None]
  - ASTHMA [None]
  - BLOOD PRESSURE DECREASED [None]
  - CHEST PAIN [None]
  - COLD SWEAT [None]
  - DIZZINESS [None]
  - DYSPNOEA [None]
  - ECZEMA [None]
  - HYPERSENSITIVITY [None]
  - MALAISE [None]
  - PARAESTHESIA [None]
  - SINUS CONGESTION [None]
